FAERS Safety Report 23546595 (Version 1)
Quarter: 2024Q1

REPORT INFORMATION
  Report Type: Spontaneous
  Country: SE (occurrence: SE)
  Receive Date: 20240221
  Receipt Date: 20240221
  Transmission Date: 20240410
  Serious: Yes (Other)
  Sender: FDA-Public Use
  Company Number: None

PATIENT
  Age: 65 Year
  Sex: Male
  Weight: 77 kg

DRUGS (4)
  1. ELIQUIS [Suspect]
     Active Substance: APIXABAN
     Indication: Hypertension
     Dosage: FREQUENCY TIME: 12 HOUR
     Route: 048
     Dates: start: 20230620
  2. ELIQUIS [Suspect]
     Active Substance: APIXABAN
     Indication: Cardiac fibrillation
  3. CANDESARTAN [Concomitant]
     Active Substance: CANDESARTAN
     Indication: Product used for unknown indication
     Route: 048
     Dates: start: 2022
  4. METOPROLOL [Concomitant]
     Active Substance: METOPROLOL
     Indication: Product used for unknown indication
     Route: 048
     Dates: start: 2016

REACTIONS (1)
  - Vitreous detachment [Not Recovered/Not Resolved]

NARRATIVE: CASE EVENT DATE: 20230620
